FAERS Safety Report 5006257-0 (Version None)
Quarter: 2006Q2

REPORT INFORMATION
  Report Type: 
  Country: None (occurrence: None)
  Receive Date: 20060515
  Receipt Date: 20060505
  Transmission Date: 20061013
  Serious: Yes (Hospitalization)
  Sender: FDA-Public Use
  Company Number: 24920

PATIENT
  Age: 71 Year
  Sex: Male
  Weight: 97.5234 kg

DRUGS (6)
  1. NIASPAN [Suspect]
     Indication: HYPERCHOLESTEROLAEMIA
     Dosage: 500 MG QHS PO
     Route: 048
     Dates: start: 20040101, end: 20060218
  2. ADVICOR [Suspect]
     Indication: HYPERCHOLESTEROLAEMIA
     Dosage: 1 TABLET (S) QHS PO
     Route: 048
     Dates: start: 20040101, end: 20060218
  3. ASPIRIN [Concomitant]
  4. FLOMAX [Concomitant]
  5. KLONOPIN [Concomitant]
  6. WELLBUTRIN [Concomitant]

REACTIONS (1)
  - PEPTIC ULCER HAEMORRHAGE [None]
